FAERS Safety Report 15139739 (Version 3)
Quarter: 2018Q3

REPORT INFORMATION
  Report Type: Spontaneous
  Country: US (occurrence: US)
  Receive Date: 20180713
  Receipt Date: 20180926
  Transmission Date: 20181010
  Serious: Yes (Death, Hospitalization, Other)
  Sender: FDA-Public Use
  Company Number: US-ASTRAZENECA-2018SE90185

PATIENT
  Age: 42 Year
  Sex: Female
  Weight: 98.9 kg

DRUGS (4)
  1. OLAPARIB. [Suspect]
     Active Substance: OLAPARIB
     Indication: OVARIAN CANCER
     Route: 048
     Dates: start: 20180428, end: 20180705
  2. KEYTRUDA [Suspect]
     Active Substance: PEMBROLIZUMAB
     Dosage: 200 MG ONE CYCLE
     Route: 065
     Dates: start: 20180428
  3. TAXOL/CARBOPLATIN [Concomitant]
     Indication: OVARIAN CANCER RECURRENT
  4. ARIMIDEX [Concomitant]
     Active Substance: ANASTROZOLE
     Indication: OVARIAN CANCER RECURRENT

REACTIONS (3)
  - Malignant neoplasm progression [Fatal]
  - Clostridium difficile infection [Unknown]
  - Enteritis [Unknown]

NARRATIVE: CASE EVENT DATE: 20180504
